FAERS Safety Report 7611461-9 (Version None)
Quarter: 2011Q3

REPORT INFORMATION
  Report Type: 
  Country: None (occurrence: None)
  Receive Date: 20110715
  Receipt Date: 20110706
  Transmission Date: 20111222
  Serious: Yes (Life-Threatening, Hospitalization)
  Sender: FDA-Public Use
  Company Number: US-ROCHE-789550

PATIENT
  Age: 64 Year
  Sex: Male
  Weight: 130.6 kg

DRUGS (3)
  1. BEVACIZUMAB [Suspect]
     Dosage: 15 MG/KG IV OVER 30-90 MIN ON DAY 1. LAST DOSE PRIOR TO SAE  06 MAY 2011, TOTAL DOSE: 2000 MG
     Route: 042
     Dates: start: 20110415
  2. CISPLATIN [Suspect]
     Dosage: 75 MG/M2 IV OVER 60 MIN ON DAY 1, LAST DOSE: 06 MAY 2011, TOTAL DOSE: 165 MG
     Route: 042
     Dates: start: 20110415
  3. GEMCITABINE [Suspect]
     Dosage: FREQUENCY: OVER 30 MINS ON DAYS 1 AND 8, LAST DOSE: 06 MAY 2011,TOTAL DOSE: 2600 MG
     Route: 042
     Dates: start: 20110415

REACTIONS (2)
  - HYPOXIA [None]
  - THROMBOSIS [None]
